FAERS Safety Report 7236550-2 (Version None)
Quarter: 2011Q1

REPORT INFORMATION
  Report Type: 
  Country: None (occurrence: None)
  Receive Date: 20110112
  Receipt Date: 20101227
  Transmission Date: 20110831
  Serious: Yes (Hospitalization, Other)
  Sender: FDA-Public Use
  Company Number: 2009BI038513

PATIENT
  Age: 71 Year
  Sex: Female
  Weight: 50 kg

DRUGS (14)
  1. LENDORMIN [Concomitant]
  2. SOLANAX [Concomitant]
  3. ASPIRIN [Concomitant]
  4. ADALAT CC [Concomitant]
  5. LIPITOR [Concomitant]
  6. POLARAMINE [Concomitant]
  7. TAKEPRON [Concomitant]
  8. SELBEX [Concomitant]
  9. ZEVALIN [Suspect]
     Indication: EXTRANODAL MARGINAL ZONE B-CELL LYMPHOMA (MALT TYPE) STAGE II
     Dosage: 740 MBQ; 1X; IV
     Route: 042
     Dates: start: 20090512, end: 20090519
  10. MYSLEE [Concomitant]
  11. LOXONIN [Concomitant]
  12. RITUXAN [Concomitant]
  13. RITUXIMAB [Concomitant]
  14. CONSTAN [Concomitant]

REACTIONS (5)
  - BONE MARROW FAILURE [None]
  - HYPOAESTHESIA [None]
  - ABDOMINAL PAIN UPPER [None]
  - PLATELET COUNT DECREASED [None]
  - NEUROPATHY PERIPHERAL [None]
